FAERS Safety Report 25892262 (Version 1)
Quarter: 2025Q4

REPORT INFORMATION
  Report Type: Spontaneous
  Country: US (occurrence: US)
  Receive Date: 20251007
  Receipt Date: 20251007
  Transmission Date: 20260118
  Serious: Yes (Other)
  Sender: ANI
  Company Number: US-ANIPHARMA-2025-US-045121

PATIENT
  Age: 69 Year
  Sex: Male

DRUGS (3)
  1. RINVOQ [Concomitant]
     Active Substance: UPADACITINIB
  2. ACTEMRA [Concomitant]
     Active Substance: TOCILIZUMAB
  3. CORTICOTROPIN [Suspect]
     Active Substance: CORTICOTROPIN
     Indication: Product used for unknown indication

REACTIONS (3)
  - Atrial fibrillation [Unknown]
  - Blood pressure increased [Not Recovered/Not Resolved]
  - Hyperglycaemia [Not Recovered/Not Resolved]

NARRATIVE: CASE EVENT DATE: 20250701
